FAERS Safety Report 4688658-3 (Version None)
Quarter: 2005Q2

REPORT INFORMATION
  Report Type: 
  Country: None (occurrence: None)
  Receive Date: 20050613
  Receipt Date: 20050601
  Transmission Date: 20051028
  Serious: Yes (Other)
  Sender: FDA-Public Use
  Company Number: US-JNJFOC-20050602739

PATIENT
  Age: 13 Year

DRUGS (2)
  1. ACETAMINOPHEN [Suspect]
  2. ACETAMINOPHEN [Suspect]
     Indication: DRUG USE FOR UNKNOWN INDICATION

REACTIONS (5)
  - BRONCHOSPASM [None]
  - CONJUNCTIVITIS [None]
  - COUGH [None]
  - FORCED EXPIRATORY VOLUME DECREASED [None]
  - VITAL CAPACITY DECREASED [None]
